FAERS Safety Report 5490568-9 (Version None)
Quarter: 2007Q4

REPORT INFORMATION
  Report Type: 
  Country: None (occurrence: None)
  Receive Date: 20071019
  Receipt Date: 20071016
  Transmission Date: 20080405
  Serious: Yes (Death)
  Sender: FDA-Public Use
  Company Number: FR-JNJFOC-20071004119

PATIENT
  Sex: Male

DRUGS (2)
  1. REMINYL [Suspect]
     Indication: DEMENTIA ALZHEIMER'S TYPE
     Route: 048
  2. MESTINON [Concomitant]
     Indication: MUSCULAR WEAKNESS

REACTIONS (3)
  - ENCEPHALOPATHY [None]
  - HYPERCAPNIA [None]
  - RESPIRATORY FAILURE [None]
